FAERS Safety Report 9596937 (Version 3)
Quarter: 2013Q4

REPORT INFORMATION
  Report Type: Spontaneous
  Country: NO (occurrence: NO)
  Receive Date: 20131004
  Receipt Date: 20131106
  Transmission Date: 20140711
  Serious: Yes (Other)
  Sender: FDA-Public Use
  Company Number: NO-ACTAVIS-2013-17518

PATIENT
  Sex: Female

DRUGS (4)
  1. LEVETIRACETAM (UNKNOWN) [Suspect]
     Indication: EPILEPSY
     Dosage: 2500 MG, DAILY
     Route: 048
  2. LEVETIRACETAM (UNKNOWN) [Suspect]
     Dosage: 1750 MG, DAILY
     Route: 065
  3. TOPIRAMATE (UNKNOWN) [Suspect]
     Indication: EPILEPSY
     Dosage: 450 MG, DAILY; DOSAGE FROM: UNSPECIFIED
     Route: 048
  4. TOPIRAMATE (UNKNOWN) [Suspect]
     Dosage: 400 MG, DAILY; DOSAGE FROM: UNSPECIFIED
     Route: 048

REACTIONS (3)
  - Grand mal convulsion [Unknown]
  - Exposure during pregnancy [Recovered/Resolved]
  - Drug level decreased [Unknown]
